FAERS Safety Report 4768308-8 (Version None)
Quarter: 2005Q3

REPORT INFORMATION
  Report Type: 
  Country: None (occurrence: None)
  Receive Date: 20050906
  Receipt Date: 20050606
  Transmission Date: 20060218
  Serious: No
  Sender: FDA-Public Use
  Company Number: 2004-BP-08292BP

PATIENT
  Sex: Female

DRUGS (12)
  1. SPIRIVA [Suspect]
     Indication: EMPHYSEMA
     Dosage: 18 MCG (18 MCG, QD) , IH
     Route: 055
     Dates: start: 20040801
  2. FORADIL [Concomitant]
  3. PULMICORT [Concomitant]
  4. LIPITOR [Concomitant]
  5. SYNTHROID [Concomitant]
  6. TOPROL-XL [Concomitant]
  7. PLAVIX [Concomitant]
  8. FOLTX (TRIOBE) [Concomitant]
  9. ACETYLSALICYLIC ACID SRT [Concomitant]
  10. PROTONIX [Concomitant]
  11. DIOVAN [Concomitant]
  12. FOSAMAX [Concomitant]

REACTIONS (1)
  - DRY EYE [None]
